FAERS Safety Report 5164234-3 (Version None)
Quarter: 2006Q4

REPORT INFORMATION
  Report Type: 
  Country: None (occurrence: None)
  Receive Date: 20061204
  Receipt Date: 20060911
  Transmission Date: 20070319
  Serious: Yes (Death, Other)
  Sender: FDA-Public Use
  Company Number: VE-ABBOTT-06P-178-0343740-00

PATIENT
  Sex: Female
  Weight: 64 kg

DRUGS (9)
  1. ZEMPLAR [Suspect]
     Indication: HYPERPARATHYROIDISM SECONDARY
     Route: 042
     Dates: start: 20050915, end: 20060905
  2. BENUTREX [Concomitant]
     Indication: VITAMIN SUPPLEMENTATION
     Route: 048
     Dates: start: 20000101, end: 20060905
  3. ERYTHROPOYETIN [Concomitant]
     Indication: ANAEMIA
     Route: 042
     Dates: start: 20000101, end: 20060905
  4. FOLIC ACID [Concomitant]
     Indication: VITAMIN SUPPLEMENTATION
     Route: 048
     Dates: start: 20000101, end: 20060905
  5. FOLIC ACID [Concomitant]
     Route: 048
  6. NIFEDIPINE [Concomitant]
     Indication: BLOOD PRESSURE INCREASED
     Route: 048
  7. B-KOMPLEX ^LECIVA^ [Concomitant]
     Indication: VITAMIN SUPPLEMENTATION
     Route: 030
  8. B-KOMPLEX ^LECIVA^ [Concomitant]
     Route: 048
  9. CALCIUM CARBONATE [Concomitant]
     Indication: HYPERPHOSPHATAEMIA
     Route: 048

REACTIONS (2)
  - ACUTE CORONARY SYNDROME [None]
  - VITAL FUNCTIONS ABNORMAL [None]
